FAERS Safety Report 16184864 (Version 10)
Quarter: 2019Q3

REPORT INFORMATION
  Report Type: Spontaneous
  Country: US (occurrence: US)
  Receive Date: 20190411
  Receipt Date: 20190923
  Transmission Date: 20191004
  Serious: Yes (Other)
  Sender: FDA-Public Use
  Company Number: US-PFIZER INC-2019155766

PATIENT
  Age: 61 Year
  Sex: Female

DRUGS (2)
  1. XELJANZ [Suspect]
     Active Substance: TOFACITINIB CITRATE
     Indication: COLITIS ULCERATIVE
     Dosage: 10 MG, 2X/DAY
     Route: 048
     Dates: start: 201812
  2. XELJANZ [Suspect]
     Active Substance: TOFACITINIB CITRATE
     Dosage: 10 MG, 1X/DAY
     Route: 048
     Dates: start: 201812

REACTIONS (9)
  - Colitis ulcerative [Unknown]
  - Hunger [Unknown]
  - Pre-existing condition improved [Unknown]
  - Fatigue [Unknown]
  - Scar [Not Recovered/Not Resolved]
  - Malaise [Unknown]
  - Product dose omission [Unknown]
  - Clostridium difficile infection [Unknown]
  - C-reactive protein increased [Unknown]
